FAERS Safety Report 20918511 (Version 1)
Quarter: 2022Q2

REPORT INFORMATION
  Report Type: Spontaneous
  Country: US (occurrence: None)
  Receive Date: 20220603
  Receipt Date: 20220603
  Transmission Date: 20220721
  Serious: No
  Sender: FDA-Public Use
  Company Number: None

PATIENT
  Age: 79 Year
  Sex: Female
  Weight: 66.6 kg

DRUGS (6)
  1. PAXLOVID [Suspect]
     Active Substance: NIRMATRELVIR\RITONAVIR
     Indication: COVID-19
     Dosage: FREQUENCY : TWICE A DAY;?
     Route: 048
     Dates: start: 20220518, end: 20220523
  2. LEVOTHYROXINE [Concomitant]
     Active Substance: LEVOTHYROXINE
  3. CLOBETASOL PROPIONATE [Concomitant]
     Active Substance: CLOBETASOL PROPIONATE
  4. PREMARIN [Concomitant]
     Active Substance: ESTROGENS, CONJUGATED
  5. VITAMIN D3 [Concomitant]
     Active Substance: CHOLECALCIFEROL
  6. Centrum multivitamin [Concomitant]

REACTIONS (7)
  - Headache [None]
  - Pyrexia [None]
  - Rhinorrhoea [None]
  - COVID-19 [None]
  - Upper respiratory tract infection [None]
  - Throat irritation [None]
  - Pyrexia [None]

NARRATIVE: CASE EVENT DATE: 20220530
